FAERS Safety Report 7878520-7 (Version None)
Quarter: 2011Q4

REPORT INFORMATION
  Report Type: 
  Country: None (occurrence: None)
  Receive Date: 20111014
  Receipt Date: 20110427
  Transmission Date: 20120403
  Serious: Yes (Other)
  Sender: FDA-Public Use
  Company Number: 1000020557

PATIENT
  Sex: Female

DRUGS (2)
  1. ANTI-INFLAMMATORY (NOS) (ANTI-INFLAMMATORY (NOS)) [Suspect]
  2. LEXAPRO [Suspect]
     Dosage: ORAL
     Dates: start: 20070101

REACTIONS (3)
  - OVERDOSE [None]
  - SUICIDE ATTEMPT [None]
  - INTENTIONAL OVERDOSE [None]
